FAERS Safety Report 4380286-2 (Version None)
Quarter: 2004Q2

REPORT INFORMATION
  Report Type: 
  Country: None (occurrence: None)
  Receive Date: 20040616
  Receipt Date: 20040616
  Transmission Date: 20050107
  Serious: Yes (Death)
  Sender: FDA-Public Use
  Company Number: None

PATIENT
  Sex: Female
  Weight: 96 kg

DRUGS (3)
  1. FLUDARABINE PHOSPHATE [Suspect]
     Indication: ACUTE MYELOID LEUKAEMIA
     Dosage: 54 MG QD INTRAVENOUS
     Route: 042
     Dates: start: 20040122, end: 20040126
  2. CAMPATH [Suspect]
     Dosage: 20 MG QD INTRAVENOUS
     Route: 042
     Dates: start: 20040122, end: 20040125
  3. MELPHALAN [Concomitant]

REACTIONS (2)
  - SUDDEN CARDIAC DEATH [None]
  - THROMBOTIC THROMBOCYTOPENIC PURPURA [None]
